FAERS Safety Report 12195010 (Version 1)
Quarter: 2016Q1

REPORT INFORMATION
  Report Type: Spontaneous
  Country: NO (occurrence: NO)
  Receive Date: 20160321
  Receipt Date: 20160321
  Transmission Date: 20160526
  Serious: Yes (Other)
  Sender: FDA-Public Use
  Company Number: NO-WATSON-2016-05783

PATIENT
  Age: 79 Year
  Sex: Male

DRUGS (2)
  1. FENTANYL (UNKNOWN) [Suspect]
     Active Substance: FENTANYL
     Indication: SURGERY
     Dosage: 0.5 MG, TOTAL (0,3 + 0,2 MG)
     Route: 042
     Dates: start: 20160216, end: 20160216
  2. PROPOFOL. [Concomitant]
     Active Substance: PROPOFOL
     Indication: SURGERY
     Dosage: 50 MG, TOTAL
     Route: 051
     Dates: start: 20160216, end: 20160216

REACTIONS (2)
  - Seizure [Recovered/Resolved]
  - Status epilepticus [Recovered/Resolved]

NARRATIVE: CASE EVENT DATE: 20160216
